FAERS Safety Report 10166419 (Version 1)
Quarter: 2014Q2

REPORT INFORMATION
  Report Type: Spontaneous
  Country: US (occurrence: None)
  Receive Date: 20140509
  Receipt Date: 20140509
  Transmission Date: 20141212
  Serious: Yes (Hospitalization)
  Sender: FDA-Public Use
  Company Number: None

PATIENT
  Age: 82 Year
  Sex: Female
  Weight: 57.9 kg

DRUGS (10)
  1. PRADAXA [Suspect]
     Indication: ATRIAL FIBRILLATION
     Dosage: 1 TABLET, BID, ORAL
     Route: 048
  2. LEVOTHYROXINE 88 MCG [Concomitant]
  3. AMIODARANE 200 MG [Concomitant]
  4. METOPROLOL 50/25 MG [Concomitant]
  5. ATORVASTATIN 20 MG TABLETS (ALSO REFERREDTO AS LIPITOR) DR REDDY^S [Concomitant]
  6. ASPIRIN 81 MG [Concomitant]
  7. MILTIVITAMIN [Concomitant]
  8. GLUCOSAMINE SUPPLEMENT [Concomitant]
  9. MAGNESIUM SUPPLEMENT [Concomitant]
  10. CALCIUM SUPPLEMENT [Concomitant]

REACTIONS (7)
  - Dyspnoea [None]
  - Haemoptysis [None]
  - Hypoxia [None]
  - Pulmonary interstitial emphysema syndrome [None]
  - Pleural effusion [None]
  - Pulmonary oedema [None]
  - Pulmonary alveolar haemorrhage [None]
